FAERS Safety Report 4538585-7 (Version None)
Quarter: 2004Q4

REPORT INFORMATION
  Report Type: 
  Country: None (occurrence: None)
  Receive Date: 20041222
  Receipt Date: 20041207
  Transmission Date: 20050328
  Serious: No
  Sender: FDA-Public Use
  Company Number: A01200406241

PATIENT
  Age: 69 Year
  Sex: Female

DRUGS (3)
  1. PLAVIX [Suspect]
     Dosage: 75 MG QD ORAL
     Route: 048
     Dates: start: 20041101
  2. SOTALOL HCL [Concomitant]
  3. CRESTOR [Concomitant]

REACTIONS (2)
  - FACIAL PALSY [None]
  - PARAESTHESIA [None]
